FAERS Safety Report 15976370 (Version 1)
Quarter: 2019Q1

REPORT INFORMATION
  Report Type: Spontaneous
  Country: US (occurrence: US)
  Receive Date: 20190218
  Receipt Date: 20190218
  Transmission Date: 20190418
  Serious: No
  Sender: FDA-Public Use
  Company Number: US-TEVA-2019-US-1003639

PATIENT
  Sex: Male

DRUGS (1)
  1. ALPRAZOLAM TABLET ACTAVIS [Suspect]
     Active Substance: ALPRAZOLAM
     Route: 065

REACTIONS (4)
  - Psychomotor hyperactivity [Unknown]
  - Product substitution issue [Unknown]
  - Drug ineffective [Unknown]
  - Oral discomfort [Unknown]

NARRATIVE: CASE EVENT DATE: 20190114
